FAERS Safety Report 5220792-1 (Version None)
Quarter: 2007Q1

REPORT INFORMATION
  Report Type: 
  Country: None (occurrence: None)
  Receive Date: 20070126
  Receipt Date: 20070117
  Transmission Date: 20070707
  Serious: Yes (Other)
  Sender: FDA-Public Use
  Company Number: PHNU2007DE00572

PATIENT
  Age: 63 Year
  Sex: Female

DRUGS (3)
  1. ZOMETA [Suspect]
     Indication: METASTASES TO BONE
     Route: 042
  2. ARIMIDEX [Concomitant]
     Dosage: 1 MG, QD
     Route: 048
  3. ETILEFRINE [Concomitant]
     Dosage: 30 DRP, BID
     Route: 048

REACTIONS (6)
  - DENTAL OPERATION [None]
  - IMPAIRED HEALING [None]
  - OSTEOLYSIS [None]
  - OSTEONECROSIS [None]
  - SWELLING [None]
  - TOOTH EXTRACTION [None]
